FAERS Safety Report 18267153 (Version 1)
Quarter: 2020Q3

REPORT INFORMATION
  Report Type: Report from Study
  Country: BR (occurrence: BR)
  Receive Date: 20200915
  Receipt Date: 20200915
  Transmission Date: 20201103
  Serious: Yes (Death, Hospitalization, Other)
  Sender: FDA-Public Use
  Company Number: BR-B.I. PHARMACEUTICALS,INC./RIDGEFIELD-2018-BI-003084

PATIENT
  Age: 56 Year
  Sex: Male
  Weight: 50 kg

DRUGS (9)
  1. OFEV [Suspect]
     Active Substance: NINTEDANIB
     Route: 048
  2. DOMPERIDONA [Concomitant]
     Active Substance: DOMPERIDONE
     Dosage: BEFORE BREAKFAST, LUNCH AND DINNER
     Route: 048
  3. OMEPRAZOL [Concomitant]
     Active Substance: OMEPRAZOLE
     Indication: PROPHYLAXIS
     Route: 048
  4. OFEV [Suspect]
     Active Substance: NINTEDANIB
     Indication: IDIOPATHIC PULMONARY FIBROSIS
     Route: 048
     Dates: start: 20161228
  5. OFEV [Suspect]
     Active Substance: NINTEDANIB
     Route: 048
     Dates: start: 201712
  6. OFEV [Suspect]
     Active Substance: NINTEDANIB
     Dosage: 3 TIMES IN A DAY
     Route: 048
     Dates: start: 2017
  7. DOMPERIDONA [Concomitant]
     Active Substance: DOMPERIDONE
     Indication: GASTROOESOPHAGEAL REFLUX DISEASE
     Dosage: 2 DOSAGE FORMS
     Route: 048
  8. OFEV [Suspect]
     Active Substance: NINTEDANIB
     Route: 048
  9. SALBUTAMOL [Concomitant]
     Active Substance: ALBUTEROL
     Indication: INHALATION THERAPY
     Route: 048

REACTIONS (5)
  - Dyspnoea [Unknown]
  - Abdominal pain [Not Recovered/Not Resolved]
  - Bedridden [Unknown]
  - Idiopathic pulmonary fibrosis [Fatal]
  - Diarrhoea [Recovered/Resolved]

NARRATIVE: CASE EVENT DATE: 201706
